FAERS Safety Report 21911989 (Version 1)
Quarter: 2023Q1

REPORT INFORMATION
  Report Type: Spontaneous
  Country: US (occurrence: US)
  Receive Date: 20230125
  Receipt Date: 20230125
  Transmission Date: 20230417
  Serious: No
  Sender: FDA-Public Use
  Company Number: US-ALLERGAN-2230804US

PATIENT
  Age: 34 Year
  Sex: Male
  Weight: 62.595 kg

DRUGS (1)
  1. BOTOX [Suspect]
     Active Substance: ONABOTULINUMTOXINA
     Indication: Skin wrinkling
     Dosage: UNK, SINGLE
     Route: 030
     Dates: start: 20220910, end: 20220910

REACTIONS (4)
  - Somnolence [Recovering/Resolving]
  - Asthenopia [Recovering/Resolving]
  - Facial paresis [Not Recovered/Not Resolved]
  - Therapeutic response shortened [Unknown]

NARRATIVE: CASE EVENT DATE: 20220910
